FAERS Safety Report 10491688 (Version 1)
Quarter: 2014Q4

REPORT INFORMATION
  Report Type: Spontaneous
  Country: US (occurrence: US)
  Receive Date: 20141002
  Receipt Date: 20141002
  Transmission Date: 20150528
  Serious: No
  Sender: FDA-Public Use
  Company Number: US-GLAXOSMITHKLINE-A1057722A

PATIENT
  Age: 69 Year
  Sex: Female

DRUGS (4)
  1. ADVAIR HFA [Suspect]
     Active Substance: FLUTICASONE PROPIONATE\SALMETEROL XINAFOATE
     Indication: ASTHMA
     Dosage: 1PUFF TWICE PER DAY
     Route: 055
     Dates: start: 2009, end: 2013
  2. PROVENTIL [Concomitant]
     Active Substance: ALBUTEROL
  3. TYLENOL WITH CODEINE [Concomitant]
     Active Substance: ACETAMINOPHEN\CODEINE PHOSPHATE
  4. BUTALBITAL [Concomitant]
     Active Substance: BUTALBITAL

REACTIONS (5)
  - Vision blurred [Unknown]
  - Neck pain [Unknown]
  - Mobility decreased [Unknown]
  - Heart rate increased [Not Recovered/Not Resolved]
  - Pain in extremity [Unknown]
